FAERS Safety Report 6924915-5 (Version None)
Quarter: 2010Q3

REPORT INFORMATION
  Report Type: 
  Country: None (occurrence: None)
  Receive Date: 20100816
  Receipt Date: 20100805
  Transmission Date: 20110219
  Serious: Yes (Other)
  Sender: FDA-Public Use
  Company Number: US-PFIZER INC-2010090099

PATIENT
  Sex: Female
  Weight: 102.04 kg

DRUGS (4)
  1. CHANTIX [Suspect]
     Indication: SMOKING CESSATION THERAPY
     Dosage: 1 MG, 1X/DAY
     Route: 048
     Dates: start: 20080307, end: 20080101
  2. METOPROLOL [Concomitant]
     Indication: HYPERTENSION
     Dosage: 50 MG, DAILY
     Route: 048
  3. PLAVIX [Concomitant]
     Indication: CORONARY ARTERIAL STENT INSERTION
     Dosage: 75 MG, DAILY
     Route: 048
     Dates: start: 20050101
  4. VALIUM [Concomitant]
     Indication: MULTIPLE SCLEROSIS
     Dosage: 10 MG, UNK

REACTIONS (5)
  - CRYING [None]
  - DEPRESSION [None]
  - DISORIENTATION [None]
  - FRUSTRATION [None]
  - MEMORY IMPAIRMENT [None]
